FAERS Safety Report 6278638-9 (Version None)
Quarter: 2009Q3

REPORT INFORMATION
  Report Type: 
  Country: None (occurrence: None)
  Receive Date: 20090722
  Receipt Date: 20090427
  Transmission Date: 20100115
  Serious: No
  Sender: FDA-Public Use
  Company Number: US-BAUSCH-2009BL001894

PATIENT
  Age: 49 Year
  Sex: Female
  Weight: 55 kg

DRUGS (3)
  1. OPCON-A [Suspect]
     Indication: EYE PRURITUS
     Route: 047
     Dates: start: 20090424, end: 20090424
  2. OPCON-A [Suspect]
     Route: 047
     Dates: start: 20090425, end: 20090425
  3. ADVIL COLD AND SINUS [Concomitant]
     Indication: SEASONAL ALLERGY
     Route: 048
     Dates: start: 20090424, end: 20090425

REACTIONS (4)
  - EYELID MARGIN CRUSTING [None]
  - EYELID OEDEMA [None]
  - EYELIDS PRURITUS [None]
  - OCULAR HYPERAEMIA [None]
